FAERS Safety Report 11201757 (Version 1)
Quarter: 2015Q2

REPORT INFORMATION
  Report Type: Spontaneous
  Country: US (occurrence: None)
  Receive Date: 20150617
  Receipt Date: 20150617
  Transmission Date: 20150821
  Serious: Yes (Life-Threatening, Hospitalization)
  Sender: FDA-Public Use
  Company Number: None

PATIENT
  Age: 76 Year
  Sex: Male
  Weight: 69.4 kg

DRUGS (1)
  1. CLOPIDOGREL [Suspect]
     Active Substance: CLOPIDOGREL BISULFATE
     Indication: ANGIOGRAM
     Dosage: 600 MG  ONCE  PO
     Route: 048
     Dates: start: 20150331, end: 20150501

REACTIONS (3)
  - Ischaemic stroke [None]
  - Haemorrhage intracranial [None]
  - Extra dose administered [None]

NARRATIVE: CASE EVENT DATE: 20150401
